FAERS Safety Report 10513573 (Version 2)
Quarter: 2014Q4

REPORT INFORMATION
  Report Type: Report from Study
  Country: MX (occurrence: MX)
  Receive Date: 20141013
  Receipt Date: 20141111
  Transmission Date: 20150528
  Serious: Yes (Other)
  Sender: FDA-Public Use
  Company Number: MX-SA-2014SA124298

PATIENT
  Age: 43 Year
  Sex: Female

DRUGS (1)
  1. CEREZYME [Suspect]
     Active Substance: IMIGLUCERASE
     Indication: GAUCHER^S DISEASE
     Route: 042

REACTIONS (5)
  - Dyspnoea [Unknown]
  - Arthralgia [Unknown]
  - Anxiety [Unknown]
  - Joint injury [Unknown]
  - Multiple fractures [Unknown]
